FAERS Safety Report 7565534-X (Version None)
Quarter: 2011Q2

REPORT INFORMATION
  Report Type: 
  Country: None (occurrence: None)
  Receive Date: 20110623
  Receipt Date: 20100112
  Transmission Date: 20111010
  Serious: No
  Sender: FDA-Public Use
  Company Number: 2010BI001445

PATIENT
  Sex: Female

DRUGS (1)
  1. TYSABRI [Suspect]
     Indication: MULTIPLE SCLEROSIS
     Route: 042
     Dates: start: 20071114

REACTIONS (7)
  - FATIGUE [None]
  - TREMOR [None]
  - DYSSTASIA [None]
  - PAIN IN JAW [None]
  - GAIT DISTURBANCE [None]
  - PAIN IN EXTREMITY [None]
  - ASTHENIA [None]
